FAERS Safety Report 4490841-7 (Version None)
Quarter: 2004Q4

REPORT INFORMATION
  Report Type: 
  Country: None (occurrence: None)
  Receive Date: 20041027
  Receipt Date: 20041012
  Transmission Date: 20050328
  Serious: Yes (Other)
  Sender: FDA-Public Use
  Company Number: DE-2004-032811

PATIENT
  Age: 56 Year
  Sex: Male
  Weight: 75 kg

DRUGS (12)
  1. MAGNEVIST [Suspect]
     Indication: NUCLEAR MAGNETIC RESONANCE IMAGING
     Dosage: 30 ML 1 DOSE, INTRAVENOUS
     Route: 042
     Dates: start: 20040907, end: 20040907
  2. BEL-ZOC MITE (METOPROLOL SUCCINATE) [Concomitant]
  3. CALCIUM CARBONATE [Concomitant]
  4. TICLOPIDINE HCL [Concomitant]
  5. PHOSPHONORM (ALUMINIUM CHLORHYDROXIDE-COMPLEX) [Concomitant]
  6. FOLGAMMA [Concomitant]
  7. RENA-VITE [Concomitant]
  8. MAGNESIUM (MAGNESIUM) [Concomitant]
  9. ATORVASTATIN CALCIUM [Concomitant]
  10. FERRLECIT /GFR/ (FERRIC SODIUM GLUCONATE COMPLEX) [Concomitant]
  11. XANEF (ENALAPRIL MALEATE) [Concomitant]
  12. DOBUTEMINE (DOBUTAMINE) [Concomitant]

REACTIONS (14)
  - ANGINA PECTORIS [None]
  - BLOOD IMMUNOGLOBULIN E INCREASED [None]
  - BODY TEMPERATURE INCREASED [None]
  - C-REACTIVE PROTEIN INCREASED [None]
  - CARDIOVASCULAR DISORDER [None]
  - CHILLS [None]
  - EOSINOPHILIA [None]
  - GENERAL PHYSICAL HEALTH DETERIORATION [None]
  - HYPERSENSITIVITY [None]
  - HYPOTENSION [None]
  - NAUSEA [None]
  - PAIN IN EXTREMITY [None]
  - RENAL FAILURE ACUTE [None]
  - SEPSIS [None]
